FAERS Safety Report 10969629 (Version 1)
Quarter: 2015Q1

REPORT INFORMATION
  Report Type: Spontaneous
  Country: FR (occurrence: None)
  Receive Date: 20150327
  Receipt Date: 20150327
  Transmission Date: 20150721
  Serious: Yes (Hospitalization)
  Sender: FDA-Public Use
  Company Number: 8017641

PATIENT
  Age: 43 Year
  Sex: Male

DRUGS (11)
  1. URBANYL (CLOBAZAM) [Concomitant]
  2. MOVICOL /01749801/ (MOVICOL/01749801/) (SODIUM BICARBONATE, POTASSIUM CHLORIDE, SODIUM CHLORIDE, MACROGOL 3350) [Concomitant]
  3. TEGRETOL [Suspect]
     Active Substance: CARBAMAZEPINE
     Route: 048
  4. DAFALGAN (PARACETAMOL) [Concomitant]
  5. LEVOTHYROX (LEVOTHYROXINE SODIUM) (TABLET) (LEVOTHYROXINE SODIUM) [Suspect]
     Active Substance: LEVOTHYROXINE
     Indication: PRODUCT USED FOR UNKNOWN INDICATION
     Route: 048
  6. DEPAKINE CHRONO (ERGENYL CHRONO) (FILM-COATED TABLET) (VALPROIC ACID, VALPROATE SODIUM) [Concomitant]
     Indication: PRODUCT USED FOR UNKNOWN INDICATION
     Route: 048
  7. SALVACYL (TRIPTORELIN EMBONATE) (11.225 MILLIGRAM, POWDER FOR SOLUTION FOR INJECTION) (TRIPTORELIN EMBONATE) [Concomitant]
     Dosage: 1 IN 12 WK
  8. LOXAPAC /00401801/ (LOXAPINE) [Concomitant]
  9. TERCIAN /00759301/ (CYAMEMAZINE) [Concomitant]
  10. VALIUM [Concomitant]
     Active Substance: DIAZEPAM
  11. PANTOPRAZOLE [Concomitant]
     Active Substance: PANTOPRAZOLE SODIUM

REACTIONS (2)
  - Osteoporosis [None]
  - Osteoporotic fracture [None]

NARRATIVE: CASE EVENT DATE: 20141215
